FAERS Safety Report 6735334-9 (Version None)
Quarter: 2010Q2

REPORT INFORMATION
  Report Type: 
  Country: None (occurrence: None)
  Receive Date: 20100521
  Receipt Date: 20100305
  Transmission Date: 20101027
  Serious: Yes (Death, Hospitalization)
  Sender: FDA-Public Use
  Company Number: CA-ROCHE-678981

PATIENT
  Age: 66 Year
  Sex: Female
  Weight: 83 kg

DRUGS (19)
  1. TRASTUZUMAB [Suspect]
     Indication: BREAST CANCER
     Dosage: ONCE, LOADING DOSE.
     Route: 042
     Dates: start: 20070829, end: 20070829
  2. TRASTUZUMAB [Suspect]
     Route: 042
     Dates: start: 20070924, end: 20071105
  3. SUNITINIB MALATE [Suspect]
     Indication: BREAST CANCER
     Route: 048
     Dates: start: 20070829, end: 20071119
  4. SYNTHROID [Concomitant]
     Dosage: DRUG: SYNTHROID (LEVOTHYROXINE SODIUM).
     Dates: start: 19890101, end: 20071101
  5. MULTIVITAMIN NOS [Concomitant]
     Dates: start: 20000101, end: 20071101
  6. VITAMIN C [Concomitant]
     Dates: start: 19850101, end: 20071101
  7. VITAMIN E [Concomitant]
     Dates: start: 20000101, end: 20071101
  8. LINSEED [Concomitant]
     Dates: start: 20000101, end: 20071101
  9. ASPIRIN [Concomitant]
     Dates: start: 20060501, end: 20071101
  10. LIPITOR [Concomitant]
     Dates: start: 20070701, end: 20071101
  11. TYLENOL [Concomitant]
     Dates: start: 20070901, end: 20071101
  12. PARIET [Concomitant]
     Dates: start: 20070921, end: 20071101
  13. BAKING SODA [Concomitant]
     Dates: start: 20070926, end: 20071101
  14. ATIVAN [Concomitant]
     Dates: start: 20061101, end: 20071101
  15. AMOXICILLIN [Concomitant]
     Dates: start: 20071022, end: 20071029
  16. FUCIDINE CAP [Concomitant]
     Dates: start: 20071114, end: 20071101
  17. TOBRADEX [Concomitant]
     Dates: start: 20071114, end: 20071101
  18. NORMAL SALINE [Concomitant]
     Dates: start: 20071121, end: 20071121
  19. CALCIUM CHLORIDE/MAGNESIUM CHLORIDE [Concomitant]
     Dates: start: 20000101, end: 20071101

REACTIONS (2)
  - CARDIOGENIC SHOCK [None]
  - MULTI-ORGAN FAILURE [None]
